FAERS Safety Report 6578764-0 (Version None)
Quarter: 2010Q1

REPORT INFORMATION
  Report Type: 
  Country: None (occurrence: None)
  Receive Date: 20100202
  Receipt Date: 20100122
  Transmission Date: 20100710
  Serious: Yes (Hospitalization)
  Sender: FDA-Public Use
  Company Number: 2010AP000147

PATIENT
  Age: 40 Year
  Sex: Female

DRUGS (22)
  1. PAROXETINE HCL [Suspect]
     Indication: DEPRESSION
     Dosage: 20, 10 MG
     Dates: start: 19980901
  2. PAROXETINE HYDROCHLORIDE [Suspect]
     Indication: DEPRESSION
     Dosage: 20 MG
     Dates: start: 20020101
  3. PAROXETINE HYDROCHLORIDE [Suspect]
     Indication: DEPRESSION
     Dosage: 20 MG
     Dates: start: 20040101
  4. ZUCLOPENTHIXOL ACETATE (ZUCLOPENTHIXOL ACETATE) [Concomitant]
  5. ZUCLOPENTHIXOL HYDROCHLORIDE (ZUCLOPENTHIXOL DIHYDROCHLORIDE) [Concomitant]
  6. ZUCLOPENTHIXOL HYDROCHLORIDE (ZYCLOPENTHIXOL HYDROCHLORIDE) [Concomitant]
  7. DIVALPROEX SODIUM [Concomitant]
  8. FLUPENTIXOL DECANOATE (FLUPENTIXOL DECANOATE) [Concomitant]
  9. FLUPENTIXOL DIHYDROCHLORIDE (FLUPENTIXOL DIHYDROCHLORIDE) [Concomitant]
  10. VALPROATE SODIUM [Concomitant]
  11. LITHIUM CARBONATE [Concomitant]
  12. OLANZAPINE [Concomitant]
  13. ACETAMINOPHEN [Concomitant]
  14. QUETIAPINE FUMARATE [Concomitant]
  15. RISPERIDONE [Concomitant]
  16. SULPIRIDE (SULPIRIDE) [Concomitant]
  17. ZOPICLONE (ZOPICLONE) [Concomitant]
  18. ZUCLOPENTHIXOL ACETATE (ZUCLOPENTHIXOL ACETATE) [Concomitant]
  19. ZUCLOPENTHIXOL DIHYDROCHLORIDE (ZUCLOPENTHIXOL DIHYDROCHLORIDE) [Concomitant]
  20. ZUCLOPENTHIXOL HYDROCHLORIDE (ZUCLOPENTHIXOL HYDROCHLORIDE) [Concomitant]
  21. FLUPENTIXOL (FLUPENTIXOL) [Concomitant]
  22. OLANZAPINE [Concomitant]

REACTIONS (12)
  - ALCOHOL ABUSE [None]
  - BIPOLAR DISORDER [None]
  - CONDITION AGGRAVATED [None]
  - DEPRESSION [None]
  - DISEASE RECURRENCE [None]
  - OVERDOSE [None]
  - PERSONALITY DISORDER [None]
  - REFUSAL OF TREATMENT BY PATIENT [None]
  - SUBSTANCE ABUSE [None]
  - SUICIDAL IDEATION [None]
  - SUICIDE ATTEMPT [None]
  - TREATMENT NONCOMPLIANCE [None]
